FAERS Safety Report 25980492 (Version 1)
Quarter: 2025Q4

REPORT INFORMATION
  Report Type: Spontaneous
  Country: IL (occurrence: IL)
  Receive Date: 20251030
  Receipt Date: 20251030
  Transmission Date: 20260117
  Serious: Yes (Death)
  Sender: NOVO NORDISK
  Company Number: IL-NOVOPROD-1545725

PATIENT
  Age: 86 Year
  Sex: Female

DRUGS (1)
  1. OZEMPIC [Suspect]
     Active Substance: SEMAGLUTIDE
     Indication: Diabetes mellitus
     Dosage: UNK

REACTIONS (1)
  - Pancreatic carcinoma [Fatal]
